FAERS Safety Report 6517563-2 (Version None)
Quarter: 2009Q4

REPORT INFORMATION
  Report Type: 
  Country: None (occurrence: None)
  Receive Date: 20091224
  Receipt Date: 20091221
  Transmission Date: 20100525
  Serious: Yes (Life-Threatening, Hospitalization)
  Sender: FDA-Public Use
  Company Number: US-ROCHE-675916

PATIENT
  Age: 6 Year
  Sex: Female

DRUGS (4)
  1. CEFTRIAXONE [Suspect]
     Indication: PROPHYLAXIS
     Dosage: SPECIFIC INDICATION REPORTED AS BROAD-SPECTRUM ANTIMICROBIAL PROPHYLAXIS.
     Route: 042
  2. CEFTRIAXONE [Suspect]
     Dosage: SPECIFIC INDICATION REPORTED AS BROAD-SPECTRUM ANTIMICROBIAL PROPHYLAXIS.
     Route: 042
  3. MORPHINE [Concomitant]
     Indication: PAIN
     Route: 042
  4. MORPHINE [Concomitant]
     Dosage: REPORTED AS AT A DECREASED DOSE.
     Route: 042

REACTIONS (3)
  - HAEMOLYSIS [None]
  - HYPOXIC ENCEPHALOPATHY [None]
  - NERVOUS SYSTEM DISORDER [None]
